FAERS Safety Report 18619670 (Version 1)
Quarter: 2020Q4

REPORT INFORMATION
  Report Type: Spontaneous
  Country: TW (occurrence: TW)
  Receive Date: 20201215
  Receipt Date: 20201215
  Transmission Date: 20210114
  Serious: Yes (Hospitalization)
  Sender: FDA-Public Use
  Company Number: TW-PFIZER INC-2020486647

PATIENT
  Age: 73 Year
  Sex: Male
  Weight: 65 kg

DRUGS (16)
  1. BROSYM [Suspect]
     Active Substance: CEFOPERAZONE SODIUM\SULBACTAM SODIUM
     Indication: SEPSIS
     Dosage: 4G/STAT
     Route: 042
     Dates: start: 20201115
  2. FINIBAX [Concomitant]
     Active Substance: DORIPENEM MONOHYDRATE
     Indication: SEPSIS
     Dosage: 500 MG, 3X/DAY
     Route: 042
     Dates: start: 20201118, end: 20201127
  3. NYSTATIN. [Concomitant]
     Active Substance: NYSTATIN
     Dosage: 1#/QID
     Route: 048
     Dates: start: 20201204, end: 20201208
  4. PREDONINE [Concomitant]
     Active Substance: PREDNISOLONE
     Dosage: 2 DF, 1X/DAY
     Route: 048
     Dates: start: 20201201, end: 20201210
  5. PREDONINE [Concomitant]
     Active Substance: PREDNISOLONE
     Indication: INFLAMMATION
     Dosage: 2 DF, 2X/DAY(BID)
     Route: 048
     Dates: start: 20201118, end: 20201126
  6. PREDONINE [Concomitant]
     Active Substance: PREDNISOLONE
     Indication: ANALGESIC THERAPY
     Dosage: 1 DF, 3X/DAY
     Route: 048
     Dates: start: 20201202, end: 20201204
  7. DIFLUCAN [Suspect]
     Active Substance: FLUCONAZOLE
     Indication: FUNGAL INFECTION
     Dosage: 200MG/STAT
     Route: 042
     Dates: start: 20201120
  8. ATROVENT [Concomitant]
     Active Substance: IPRATROPIUM BROMIDE
     Indication: PNEUMONITIS
     Dosage: 2 ML, 3X/DAY(TID)
     Route: 055
     Dates: start: 20201118, end: 20201126
  9. LUCKYHEPA [Concomitant]
     Indication: THERAPEUTIC PROCEDURE
     Dosage: 1 DF, 3X/DAY(TID)
     Route: 048
     Dates: start: 20201118, end: 20201201
  10. MOPRIDE [MOSAPRIDE CITRATE] [Concomitant]
     Indication: ABDOMINAL DISCOMFORT
     Dosage: 1 DF, 3X/DAY(TID)
     Route: 048
     Dates: start: 20201119, end: 20201210
  11. DIFLUCAN [Suspect]
     Active Substance: FLUCONAZOLE
     Dosage: 200 MG, 1X/DAY(QD)
     Route: 042
     Dates: start: 20201123, end: 20201125
  12. BROSYM [Suspect]
     Active Substance: CEFOPERAZONE SODIUM\SULBACTAM SODIUM
     Dosage: 4 G, 2X/DAY
     Route: 042
     Dates: start: 20201202, end: 20201203
  13. BROSYM [Suspect]
     Active Substance: CEFOPERAZONE SODIUM\SULBACTAM SODIUM
     Dosage: 4 G, 2X/DAY
     Route: 042
  14. CRAVIT [Suspect]
     Active Substance: LEVOFLOXACIN
     Indication: SEPSIS
     Dosage: 750MG/STAT
     Route: 042
     Dates: start: 20201117
  15. CRAVIT [Suspect]
     Active Substance: LEVOFLOXACIN
     Dosage: 750 MG, 1X/DAY
     Route: 042
     Dates: start: 20201119, end: 20201126
  16. NYSTATIN. [Concomitant]
     Active Substance: NYSTATIN
     Indication: MOUTH ULCERATION
     Dosage: 4#/STAT
     Route: 048
     Dates: start: 20201120, end: 20201123

REACTIONS (9)
  - Skin exfoliation [Not Recovered/Not Resolved]
  - Erythema multiforme [Not Recovered/Not Resolved]
  - Pain of skin [Not Recovered/Not Resolved]
  - Tonsillitis [Not Recovered/Not Resolved]
  - Stevens-Johnson syndrome [Not Recovered/Not Resolved]
  - Hypotension [Not Recovered/Not Resolved]
  - Dyspnoea [Not Recovered/Not Resolved]
  - Oropharyngeal pain [Not Recovered/Not Resolved]
  - Pyrexia [Not Recovered/Not Resolved]

NARRATIVE: CASE EVENT DATE: 2020
